FAERS Safety Report 7223358-7 (Version None)
Quarter: 2011Q1

REPORT INFORMATION
  Report Type: 
  Country: None (occurrence: None)
  Receive Date: 20110112
  Receipt Date: 20100517
  Transmission Date: 20110831
  Serious: No
  Sender: FDA-Public Use
  Company Number: US-ALLERGAN-1006420US

PATIENT
  Sex: Female

DRUGS (6)
  1. ATENOLOL [Concomitant]
  2. ATIVAN [Concomitant]
  3. SYNTHROID [Concomitant]
  4. RESTASIS [Suspect]
     Indication: DRY EYE
     Dosage: UNK
     Route: 047
     Dates: start: 20100506
  5. NORVASC [Concomitant]
  6. BENICAR [Concomitant]

REACTIONS (1)
  - VISION BLURRED [None]
